FAERS Safety Report 9263414 (Version 1)
Quarter: 2013Q2

REPORT INFORMATION
  Report Type: Spontaneous
  Country: GB (occurrence: None)
  Receive Date: 20130426
  Receipt Date: 20130426
  Transmission Date: 20140414
  Serious: Yes (Other)
  Sender: FDA-Public Use
  Company Number: AUR-APL-2013-03350

PATIENT
  Age: 66 Year
  Sex: Female
  Weight: 77.4 kg

DRUGS (8)
  1. NAPROXEN (NAPROXEN) [Suspect]
     Indication: PRODUCT USED FOR UNKNOWN INDICATION
     Dates: start: 20130108
  2. CHLORPHENAMINE (CHLORPHENAMINE) [Concomitant]
  3. FLUCONAZOLE (FLUCONAZOLE) [Concomitant]
  4. LANSOPRAZOLE (LANSOPRAZOLE) [Concomitant]
  5. PARACETAMOL (PARACETAMOL) [Concomitant]
  6. SODIUM CROMOGLICATE (CROMOGLICATE SODIUM) [Concomitant]
  7. TRAMADOL (TRAMADOL) [Concomitant]
  8. TRIMETHOPRIM (TRIMETHOPRIM) [Concomitant]

REACTIONS (2)
  - Hypersensitivity [None]
  - Face oedema [None]
